FAERS Safety Report 17465590 (Version 1)
Quarter: 2020Q1

REPORT INFORMATION
  Report Type: Spontaneous
  Country: US (occurrence: US)
  Receive Date: 20200227
  Receipt Date: 20200227
  Transmission Date: 20200409
  Serious: Yes (Hospitalization)
  Sender: FDA-Public Use
  Company Number: US-ROCHE-2554947

PATIENT
  Age: 77 Year
  Sex: Female

DRUGS (6)
  1. FLECAINIDE [Concomitant]
     Active Substance: FLECAINIDE
  2. ESBRIET [Suspect]
     Active Substance: PIRFENIDONE
     Indication: IDIOPATHIC PULMONARY FIBROSIS
     Dosage: 2 CAPS TID ONGOING YES
     Route: 048
     Dates: start: 20181101
  3. CEPHALEXIN [CEFALEXIN] [Concomitant]
     Active Substance: CEPHALEXIN
  4. PRAVASTATIN. [Concomitant]
     Active Substance: PRAVASTATIN
  5. ASPRIN [Concomitant]
     Active Substance: ASPIRIN
  6. BUMEX [Concomitant]
     Active Substance: BUMETANIDE

REACTIONS (1)
  - Pulmonary arterial hypertension [Unknown]

NARRATIVE: CASE EVENT DATE: 20200111
